FAERS Safety Report 22288778 (Version 1)
Quarter: 2023Q2

REPORT INFORMATION
  Report Type: Spontaneous
  Country: US (occurrence: US)
  Receive Date: 20230505
  Receipt Date: 20230505
  Transmission Date: 20230722
  Serious: Yes (Congenital Anomaly)
  Sender: FDA-Public Use
  Company Number: US-VERTEX PHARMACEUTICALS-2023-006324

PATIENT
  Sex: Male

DRUGS (2)
  1. SYMDEKO [Suspect]
     Active Substance: IVACAFTOR\TEZACAFTOR
     Indication: Cystic fibrosis
     Dosage: 100 MG TEZACAFTOR/150 MG IVACAFTOR AND 150 MG IVACAFTOR
     Route: 064
     Dates: start: 20180414, end: 20180621
  2. SYMDEKO [Suspect]
     Active Substance: IVACAFTOR\TEZACAFTOR
     Dosage: 100 MG TEZACAFTOR/150 MG IVACAFTOR AND 150 MG IVACAFTOR
     Route: 064
     Dates: start: 20180811

REACTIONS (1)
  - Fallot^s tetralogy [Unknown]
